FAERS Safety Report 8975335 (Version 1)
Quarter: 2012Q4

REPORT INFORMATION
  Report Type: 
  Country: US (occurrence: US)
  Receive Date: 20121219
  Receipt Date: 20121219
  Transmission Date: 20130627
  Serious: No
  Sender: FDA-Public Use
  Company Number: US-PFIZER INC-2012315599

PATIENT
  Age: 73 Year
  Sex: Female
  Weight: 72.56 kg

DRUGS (2)
  1. GLUCOTROL XL [Suspect]
     Indication: DIABETES
     Dosage: 5 mg at nite /1xday
     Route: 048
     Dates: start: 1996
  2. DIOVAN (VALSARTAN) [Concomitant]
     Indication: HYPERTENSION
     Dosage: UNK

REACTIONS (2)
  - Drug ineffective [Not Recovered/Not Resolved]
  - Abdominal discomfort [Unknown]
